FAERS Safety Report 7172456-5 (Version None)
Quarter: 2010Q4

REPORT INFORMATION
  Report Type: 
  Country: None (occurrence: None)
  Receive Date: 20101217
  Receipt Date: 20100625
  Transmission Date: 20110411
  Serious: No
  Sender: FDA-Public Use
  Company Number: US-AMGEN-KDL390916

PATIENT

DRUGS (9)
  1. ENBREL [Suspect]
     Indication: PRODUCT USED FOR UNKNOWN INDICATION
     Dosage: 50 MG, QWK
  2. NAPROXEN [Concomitant]
     Dosage: 500 MG, UNK
     Route: 048
  3. VALSARTAN/HYDROCHLOROTHIAZIDE [Concomitant]
     Dosage: UNK UNK, UNK
     Route: 048
  4. FLUOXETINE [Concomitant]
     Dosage: 40 MG, UNK
     Route: 048
  5. HYDROXYCHLOROQUINE [Concomitant]
     Dosage: 200 MG, UNK
  6. LEVOTHYROXINE SODIUM [Concomitant]
     Dosage: 50 A?G, UNK
     Route: 048
  7. FOLIC ACID [Concomitant]
     Dosage: 400 A?G, UNK
     Route: 048
  8. CALCIUM [Concomitant]
     Dosage: UNK UNK, UNK
     Route: 048
  9. FISH OIL [Concomitant]
     Dosage: UNK UNK, UNK
     Route: 048

REACTIONS (3)
  - NASOPHARYNGITIS [None]
  - RASH [None]
  - URTICARIA [None]
